FAERS Safety Report 18611527 (Version 4)
Quarter: 2021Q3

REPORT INFORMATION
  Report Type: Spontaneous
  Country: US (occurrence: US)
  Receive Date: 20201214
  Receipt Date: 20210705
  Transmission Date: 20211014
  Serious: No
  Sender: FDA-Public Use
  Company Number: US-PFIZER INC-2020492356

PATIENT
  Age: 58 Year
  Sex: Female

DRUGS (2)
  1. XELJANZ XR [Suspect]
     Active Substance: TOFACITINIB CITRATE
     Indication: RHEUMATOID ARTHRITIS
     Dosage: 11 MG, DAILY
     Route: 048
     Dates: start: 201905
  2. METHOTREXATE. [Concomitant]
     Active Substance: METHOTREXATE
     Dosage: UNK

REACTIONS (16)
  - Illness [Unknown]
  - Inflammation [Unknown]
  - Spinal pain [Unknown]
  - COVID-19 [Recovered/Resolved]
  - Fatigue [Unknown]
  - Uterine leiomyoma [Unknown]
  - Synovial cyst [Unknown]
  - Skin disorder [Unknown]
  - Sensitivity to weather change [Unknown]
  - Condition aggravated [Unknown]
  - Pain [Unknown]
  - Fluid retention [Unknown]
  - Product dose omission issue [Unknown]
  - Nausea [Unknown]
  - Weight increased [Unknown]
  - Loss of personal independence in daily activities [Unknown]

NARRATIVE: CASE EVENT DATE: 2020
